FAERS Safety Report 5885588-6 (Version None)
Quarter: 2008Q3

REPORT INFORMATION
  Report Type: 
  Country: None (occurrence: None)
  Receive Date: 20080916
  Receipt Date: 20080902
  Transmission Date: 20090109
  Serious: Yes (Hospitalization, Other)
  Sender: FDA-Public Use
  Company Number: US-AMGEN-US053078

PATIENT
  Age: 65 Year
  Sex: Female

DRUGS (10)
  1. ETANERCEPT [Suspect]
     Indication: WEGENER'S GRANULOMATOSIS
     Route: 058
  2. FOSAMAX [Concomitant]
  3. TRIMETHOPRIM [Concomitant]
  4. MULTI-VITAMINS [Concomitant]
  5. VITAMIN B COMPLEX CAP [Concomitant]
  6. CALCIUM [Concomitant]
  7. TYLENOL (CAPLET) [Concomitant]
  8. NASAL SALINE [Concomitant]
  9. AZATHIOPRINE [Concomitant]
  10. CYCLOPHOSPHAMIDE [Concomitant]

REACTIONS (3)
  - COLON CANCER [None]
  - METASTASIS [None]
  - MICROCYTIC ANAEMIA [None]
